FAERS Safety Report 7210570-6 (Version None)
Quarter: 2011Q1

REPORT INFORMATION
  Report Type: 
  Country: None (occurrence: None)
  Receive Date: 20110105
  Receipt Date: 20101223
  Transmission Date: 20110831
  Serious: Yes (Other)
  Sender: FDA-Public Use
  Company Number: PHFR2010IE06051

PATIENT
  Sex: Male

DRUGS (1)
  1. CLOZARIL [Suspect]
     Indication: SCHIZOPHRENIA
     Dosage: UNK
     Route: 048
     Dates: start: 20070525

REACTIONS (3)
  - EOSINOPHIL COUNT INCREASED [None]
  - DIFFERENTIAL WHITE BLOOD CELL COUNT ABNORMAL [None]
  - PLATELET ANISOCYTOSIS [None]
